FAERS Safety Report 16037047 (Version 2)
Quarter: 2019Q2

REPORT INFORMATION
  Report Type: Spontaneous
  Country: US (occurrence: US)
  Receive Date: 20190305
  Receipt Date: 20190425
  Transmission Date: 20190711
  Serious: No
  Sender: FDA-Public Use
  Company Number: US-BRISTOL-MYERS SQUIBB COMPANY-BMS-2019-022893

PATIENT
  Age: 62 Year
  Sex: Female
  Weight: 108.84 kg

DRUGS (1)
  1. ORENCIA [Suspect]
     Active Substance: ABATACEPT
     Indication: PSORIATIC ARTHROPATHY
     Dosage: 125 MG/ML, QWK
     Route: 058
     Dates: start: 201902

REACTIONS (2)
  - Accidental exposure to product [Unknown]
  - Product administration error [Unknown]

NARRATIVE: CASE EVENT DATE: 20190301
